FAERS Safety Report 5004727-2 (Version None)
Quarter: 2006Q1

REPORT INFORMATION
  Report Type: 
  Country: None (occurrence: None)
  Receive Date: 20060321
  Receipt Date: 20060201
  Transmission Date: 20060701
  Serious: No
  Sender: FDA-Public Use
  Company Number: 2006US000280

PATIENT
  Age: 47 Year
  Sex: Female

DRUGS (4)
  1. VESICARE [Suspect]
     Indication: BLADDER SPASM
     Dosage: 5 MG, UID/QD, ORAL
     Route: 048
     Dates: start: 20060125
  2. ELMIRON [Concomitant]
  3. HORMONES AND RELATED AGENTS [Concomitant]
  4. VITAMINS [Concomitant]

REACTIONS (3)
  - DIZZINESS [None]
  - HEADACHE [None]
  - VISION BLURRED [None]
